FAERS Safety Report 5079602-8 (Version None)
Quarter: 2006Q3

REPORT INFORMATION
  Report Type: 
  Country: None (occurrence: None)
  Receive Date: 20060814
  Receipt Date: 20060806
  Transmission Date: 20061208
  Serious: Yes (Death)
  Sender: FDA-Public Use
  Company Number: IL-NOVOPROD-255907

PATIENT
  Sex: Male

DRUGS (5)
  1. NOVOSEVEN [Suspect]
     Indication: INJURY
     Dosage: 7.2 MG, SINGLE AT THE OR
     Dates: start: 20060806, end: 20060806
  2. NOVOSEVEN [Suspect]
     Dosage: 7.2 MG, SINGLE
     Dates: start: 20060806, end: 20060806
  3. FRESH FROZEN PLASMA [Concomitant]
     Indication: SURGERY
     Dates: start: 20060806
  4. BLOOD CELLS, PACKED HUMAN [Concomitant]
     Dates: start: 20060806
  5. CRYOPRECIPITATES [Concomitant]
     Indication: SURGERY
     Dates: start: 20060806

REACTIONS (1)
  - DEATH [None]
